FAERS Safety Report 6355151-1 (Version None)
Quarter: 2009Q3

REPORT INFORMATION
  Report Type: 
  Country: None (occurrence: None)
  Receive Date: 20090914
  Receipt Date: 20090901
  Transmission Date: 20100115
  Serious: Yes (Hospitalization)
  Sender: FDA-Public Use
  Company Number: US-MYLANLABS-2009S1015508

PATIENT
  Age: 11 Year
  Sex: Female
  Weight: 68 kg

DRUGS (19)
  1. HEPARIN [Suspect]
     Indication: DEEP VEIN THROMBOSIS
     Dosage: 70 UNITS/KG
     Route: 040
  2. HEPARIN [Suspect]
     Indication: PULMONARY EMBOLISM
     Dosage: 70 UNITS/KG
     Route: 040
  3. HEPARIN [Suspect]
     Dosage: CONTINUOUS 18 UNITS/KG/HOUR INFUSION
     Route: 041
  4. HEPARIN [Suspect]
     Dosage: CONTINUOUS 18 UNITS/KG/HOUR INFUSION
     Route: 041
  5. HEPARIN [Suspect]
     Dosage: CONTINUOUS 18 UNITS/KG/HOUR INFUSION
     Route: 041
  6. HEPARIN [Suspect]
     Dosage: CONTINUOUS 18 UNITS/KG/HOUR INFUSION
     Route: 041
  7. ENOXAPARIN SODIUM [Suspect]
     Indication: DEEP VEIN THROMBOSIS
     Dosage: DOSAGE NOT STATED
  8. ENOXAPARIN SODIUM [Suspect]
     Indication: PULMONARY EMBOLISM
     Dosage: DOSAGE NOT STATED
  9. WARFARIN SODIUM [Suspect]
     Indication: COAGULOPATHY
     Dosage: 5 MG/DAY
     Route: 048
  10. FONDAPARINUX SODIUM [Suspect]
     Indication: DRUG USE FOR UNKNOWN INDICATION
     Dosage: 7.5 MG/DAY FOR ANTICOAGULATION
     Route: 058
  11. ALTEPLASE [Concomitant]
     Indication: DEEP VEIN THROMBOSIS
     Dosage: 1 MG/H IN THE LEFT LOWER EXTREMITY AND SUPERIOR VENA CAVA
     Route: 041
  12. BIVALIRUDIN [Concomitant]
     Dosage: 125 MCG/KG BOLUS
     Route: 040
  13. BIVALIRUDIN [Concomitant]
     Dosage: 125 MCG/KG/H
     Route: 041
  14. CEFAZOLIN [Concomitant]
     Dosage: DOSAGE NOT STATED
  15. RANITIDINE [Concomitant]
     Dosage: DOSAGE NOT STATED
  16. CHLORAL HYDRATE [Concomitant]
     Dosage: DOSAGE NOT STATED
  17. BIVALIRUDIN [Concomitant]
     Dosage: 240 MCG/KG/H
     Route: 041
  18. ARGATROBAN [Concomitant]
     Dosage: STARTED AT 2 MCG/KG/MIN AND CONTINUED AT 0.4-7.9 MCG/KG/MIN
  19. ALTEPLASE [Concomitant]
     Indication: PULMONARY EMBOLISM
     Dosage: 1 MG/H IN THE LEFT LOWER EXTREMITY AND SUPERIOR VENA CAVA
     Route: 041

REACTIONS (5)
  - DEEP VEIN THROMBOSIS [None]
  - HEPARIN-INDUCED THROMBOCYTOPENIA [None]
  - PULMONARY EMBOLISM [None]
  - RENAL VEIN THROMBOSIS [None]
  - VENA CAVA THROMBOSIS [None]
